FAERS Safety Report 21621983 (Version 1)
Quarter: 2022Q4

REPORT INFORMATION
  Report Type: Report from Study
  Country: US (occurrence: US)
  Receive Date: 20221121
  Receipt Date: 20221121
  Transmission Date: 20230113
  Serious: Yes (Hospitalization, Other)
  Sender: FDA-Public Use
  Company Number: US-TAKEDA-2022TUS085820

PATIENT
  Sex: Female

DRUGS (42)
  1. VELAGLUCERASE ALFA [Suspect]
     Active Substance: VELAGLUCERASE ALFA
     Indication: Gaucher^s disease
     Dosage: 60 INTERNATIONAL UNIT/KILOGRAM, Q2WEEKS
     Route: 065
     Dates: start: 20170728, end: 20190506
  2. VELAGLUCERASE ALFA [Suspect]
     Active Substance: VELAGLUCERASE ALFA
     Dosage: 60 MICROGRAM/KILOGRAM, Q2WEEKS
     Route: 065
     Dates: start: 20191203
  3. FLUTICASONE [Concomitant]
     Active Substance: FLUTICASONE
     Indication: Chronic sinusitis
     Dosage: 50 MICROGRAM, QD
     Route: 045
     Dates: start: 20090316
  4. CALCIUM CARBONATE [Concomitant]
     Active Substance: CALCIUM CARBONATE
     Indication: Gastrooesophageal reflux disease
     Dosage: 500 MILLIGRAM, TID
     Route: 048
     Dates: start: 20110322
  5. VITAMIN D [Concomitant]
     Active Substance: VITAMIN D NOS
     Indication: Supplementation therapy
     Dosage: 2000 INTERNATIONAL UNIT, QD
     Route: 048
     Dates: start: 20110322
  6. VENTOLIN HFA [Concomitant]
     Active Substance: ALBUTEROL SULFATE
     Indication: Asthma
     Dosage: 90 MICROGRAM
     Route: 055
     Dates: start: 20110511
  7. ALPRAZOLAM [Concomitant]
     Active Substance: ALPRAZOLAM
     Indication: Anxiety
     Dosage: 0.5 MILLIGRAM
     Route: 048
     Dates: start: 20110613, end: 20180521
  8. WARFARIN [Concomitant]
     Active Substance: WARFARIN
     Indication: Atrial flutter
     Dosage: 2 MILLIGRAM
     Route: 048
     Dates: start: 20111008
  9. MONTELUKAST [Concomitant]
     Active Substance: MONTELUKAST SODIUM
     Indication: Asthma
     Dosage: 10 MILLIGRAM, QD
     Route: 048
     Dates: start: 20160318
  10. OMEPRAZOLE [Concomitant]
     Active Substance: OMEPRAZOLE
     Indication: Barrett^s oesophagus
     Dosage: 40 MILLIGRAM, QD
     Route: 048
     Dates: start: 20170424
  11. CARAFATE [Concomitant]
     Active Substance: SUCRALFATE
     Indication: Barrett^s oesophagus
     Dosage: 10 MILLILITER, TID
     Route: 048
     Dates: start: 20170427, end: 20180310
  12. ADVAIR HFA [Concomitant]
     Active Substance: FLUTICASONE PROPIONATE\SALMETEROL XINAFOATE
     Indication: Asthma
     Dosage: UNK UNK, BID
     Route: 055
     Dates: start: 20171230
  13. CARVEDILOL [Concomitant]
     Active Substance: CARVEDILOL
     Indication: Cardiomyopathy
     Dosage: 25 MILLIGRAM, BID
     Route: 048
     Dates: start: 20180110
  14. LOSARTAN [Concomitant]
     Active Substance: LOSARTAN
     Indication: Cardiomyopathy
     Dosage: 50 MILLIGRAM, QD
     Route: 048
     Dates: start: 20180123
  15. LOVENOX [Concomitant]
     Active Substance: ENOXAPARIN SODIUM
     Indication: Atrial flutter
     Dosage: 90 MILLIGRAM, QD
     Route: 058
     Dates: start: 20180126
  16. LOVENOX [Concomitant]
     Active Substance: ENOXAPARIN SODIUM
     Indication: Lacunar stroke
  17. IPRATROPIUM [Concomitant]
     Active Substance: IPRATROPIUM
     Indication: Dyspnoea
     Dosage: UNK
     Route: 065
     Dates: start: 20160307, end: 20180308
  18. NITROGLYCERIN [Concomitant]
     Active Substance: NITROGLYCERIN
     Indication: Prophylaxis
     Dosage: UNK
     Route: 061
     Dates: start: 20180307, end: 20180308
  19. FUROSEMIDE [Concomitant]
     Active Substance: FUROSEMIDE
     Indication: Cardiac failure congestive
     Dosage: 20 MILLIGRAM
     Route: 042
     Dates: start: 20180307, end: 20180307
  20. PANTOPRAZOLE [Concomitant]
     Active Substance: PANTOPRAZOLE
     Indication: Gastrooesophageal reflux disease
     Dosage: 40 MILLIGRAM, QD
     Route: 042
     Dates: start: 20180307, end: 20180310
  21. ALBUTEROL [Concomitant]
     Active Substance: ALBUTEROL
     Indication: Asthma
     Dosage: 2.5 MILLIGRAM
     Route: 050
     Dates: start: 20180307, end: 20180307
  22. ACETAMINOPHEN [Concomitant]
     Active Substance: ACETAMINOPHEN
     Indication: Analgesic therapy
     Dosage: 750 MILLIGRAM
     Route: 042
     Dates: start: 20180308, end: 20180308
  23. ACETAMINOPHEN [Concomitant]
     Active Substance: ACETAMINOPHEN
     Dosage: 1000 MILLIGRAM
     Route: 042
     Dates: start: 20180308, end: 20180308
  24. CHOLECALCIFEROL [Concomitant]
     Active Substance: CHOLECALCIFEROL
     Indication: Supplementation therapy
     Dosage: 2000 INTERNATIONAL UNIT
     Route: 048
     Dates: start: 20180308, end: 20180308
  25. METRONIDAZOLE [Concomitant]
     Active Substance: METRONIDAZOLE
     Indication: Prophylaxis
     Dosage: 500 MILLIGRAM, TID
     Route: 042
     Dates: start: 20180308, end: 20180310
  26. CEFTRIAXONE [Concomitant]
     Active Substance: CEFTRIAXONE
     Indication: Prophylaxis
     Dosage: 1 GRAM, QD
     Route: 042
     Dates: start: 20180308, end: 20180310
  27. METOPROLOL TARTRATE [Concomitant]
     Active Substance: METOPROLOL TARTRATE
     Indication: Atrial flutter
     Dosage: 10 MILLIGRAM, QID
     Route: 042
     Dates: start: 20180308, end: 20180310
  28. POTASSIUM CHLORIDE [Concomitant]
     Active Substance: POTASSIUM CHLORIDE
     Indication: Hypokalaemia
     Dosage: UNK
     Route: 042
     Dates: start: 20180309, end: 20180309
  29. POTASSIUM CHLORIDE [Concomitant]
     Active Substance: POTASSIUM CHLORIDE
     Dosage: UNK
     Route: 042
     Dates: start: 20180309, end: 20180309
  30. POTASSIUM CHLORIDE [Concomitant]
     Active Substance: POTASSIUM CHLORIDE
     Dosage: UNK
     Route: 042
     Dates: start: 20180309, end: 20180309
  31. MAGNESIUM SULFATE [Concomitant]
     Active Substance: MAGNESIUM SULFATE
     Indication: Blood magnesium decreased
     Dosage: 4 GRAM
     Route: 042
     Dates: start: 20180309, end: 20180309
  32. PROBIOTICS NOS [Concomitant]
     Active Substance: PROBIOTICS NOS
     Indication: Prophylaxis
     Dosage: UNK
     Route: 048
     Dates: start: 20180310, end: 20180310
  33. ATORVASTATIN [Concomitant]
     Active Substance: ATORVASTATIN
     Indication: Hyperlipidaemia
     Dosage: 10 MILLIGRAM, QD
     Route: 048
     Dates: start: 20180802
  34. POLYTRIM [Concomitant]
     Active Substance: POLYMYXIN B SULFATE\TRIMETHOPRIM SULFATE
     Indication: Conjunctivitis
     Dosage: UNK UNK, QID
     Route: 050
     Dates: start: 20180819, end: 20180826
  35. BENZONATATE [Concomitant]
     Active Substance: BENZONATATE
     Indication: Cough
     Dosage: 100 MILLIGRAM, TID
     Route: 048
     Dates: start: 20180819, end: 20180921
  36. PREDNISONE [Concomitant]
     Active Substance: PREDNISONE
     Indication: Cough
     Dosage: 20 MILLIGRAM
     Route: 048
     Dates: start: 20180819, end: 20180828
  37. PREDNISONE [Concomitant]
     Active Substance: PREDNISONE
     Indication: Chronic sinusitis
     Dosage: 10 MILLIGRAM
     Route: 048
     Dates: start: 20180914, end: 20180926
  38. GUAIFENESIN AC [Concomitant]
     Active Substance: CODEINE PHOSPHATE\GUAIFENESIN
     Indication: Cough
     Dosage: UNK
     Route: 048
     Dates: start: 20180819, end: 20180826
  39. AZITHROMYCIN [Concomitant]
     Active Substance: AZITHROMYCIN
     Indication: Sinusitis
     Dosage: 250 MILLIGRAM
     Route: 048
     Dates: start: 20180907, end: 20180912
  40. AZITHROMYCIN [Concomitant]
     Active Substance: AZITHROMYCIN
     Dosage: 500 MILLIGRAM
     Route: 048
     Dates: start: 20190206, end: 20190213
  41. PULMICORT TURBUHALER [Concomitant]
     Active Substance: BUDESONIDE
     Indication: Chronic sinusitis
     Dosage: 0.5 MILLIGRAM, BID
     Route: 045
     Dates: start: 20180914
  42. TROSPIUM [Concomitant]
     Active Substance: TROSPIUM
     Indication: Hypertonic bladder
     Dosage: 20 MILLIGRAM, QD
     Route: 048
     Dates: start: 20190305

REACTIONS (1)
  - Mitral valve stenosis [Recovered/Resolved]

NARRATIVE: CASE EVENT DATE: 20220202
